FAERS Safety Report 20072978 (Version 1)
Quarter: 2021Q4

REPORT INFORMATION
  Report Type: Spontaneous
  Country: JP (occurrence: JP)
  Receive Date: 20211116
  Receipt Date: 20211116
  Transmission Date: 20220303
  Serious: Yes (Other)
  Sender: FDA-Public Use
  Company Number: JP-SA-2021SA376981

PATIENT
  Age: 73 Year
  Sex: Male

DRUGS (4)
  1. OXALIPLATIN [Suspect]
     Active Substance: OXALIPLATIN
     Indication: Colorectal cancer
     Dosage: 841 MG/M2 (TOTAL DOSE-1170 MG/BODY)
  2. FLUOROURACIL [Concomitant]
     Active Substance: FLUOROURACIL
     Indication: Colorectal cancer
     Dosage: BOLUS INJECTION OF 400 MG/M2
     Route: 040
  3. LEUCOVORIN [Concomitant]
     Active Substance: LEUCOVORIN
     Indication: Colorectal cancer
     Dosage: 200 MG/M2 VIA 2 HOUR INFUSION
     Route: 042
  4. LEUCOVORIN [Concomitant]
     Active Substance: LEUCOVORIN
     Dosage: INFUSION OF 2400 MG/M2
     Route: 042

REACTIONS (3)
  - Varices oesophageal [Unknown]
  - Thrombocytopenia [Unknown]
  - Splenomegaly [Unknown]
